FAERS Safety Report 16009368 (Version 4)
Quarter: 2019Q3

REPORT INFORMATION
  Report Type: Report from Study
  Country: None (occurrence: AU)
  Receive Date: 20190226
  Receipt Date: 20190914
  Transmission Date: 20191004
  Serious: Yes (Other)
  Sender: FDA-Public Use
  Company Number: AU-ABBVIE-19S-008-2681515-00

PATIENT
  Sex: Male
  Weight: 117 kg

DRUGS (1)
  1. LUCRIN [Suspect]
     Active Substance: LEUPROLIDE ACETATE
     Indication: PRODUCT USED FOR UNKNOWN INDICATION
     Route: 030

REACTIONS (5)
  - Post procedural complication [Unknown]
  - Pain in extremity [Unknown]
  - Thyroid neoplasm [Unknown]
  - Peripheral nerve injury [Unknown]
  - Dysstasia [Unknown]

NARRATIVE: CASE EVENT DATE: 2019
